FAERS Safety Report 8069021-4 (Version None)
Quarter: 2011Q4

REPORT INFORMATION
  Report Type: 
  Country: None (occurrence: None)
  Receive Date: 20111221
  Receipt Date: 20101101
  Transmission Date: 20120403
  Serious: Yes (Hospitalization)
  Sender: FDA-Public Use
  Company Number: PHHY2010US73703

PATIENT
  Age: 58 Year
  Sex: Male

DRUGS (2)
  1. VIDAZA [Concomitant]
  2. EXJADE [Suspect]
     Indication: MYELODYSPLASTIC SYNDROME
     Dosage: 500 MG, TID, ORAL
     Route: 048

REACTIONS (2)
  - BONE MARROW FAILURE [None]
  - PANCYTOPENIA [None]
